FAERS Safety Report 7255706-6 (Version None)
Quarter: 2011Q1

REPORT INFORMATION
  Report Type: 
  Country: None (occurrence: None)
  Receive Date: 20110129
  Receipt Date: 20100830
  Transmission Date: 20110831
  Serious: No
  Sender: FDA-Public Use
  Company Number: US-ABBOTT-10P-163-0666972-00

PATIENT
  Sex: Female

DRUGS (3)
  1. COZAAR [Concomitant]
     Indication: HYPERTENSION
     Dosage: 100 MG DAILY
  2. HUMIRA [Suspect]
     Indication: PSORIASIS
     Dates: start: 20100723
  3. HYDROCHLOROTHIAZIDE [Concomitant]
     Indication: HYPERTENSION
     Dosage: 12.5 MG DAILY

REACTIONS (3)
  - ARTHRALGIA [None]
  - MUSCULOSKELETAL PAIN [None]
  - MALAISE [None]
